FAERS Safety Report 8327367-6 (Version None)
Quarter: 2012Q2

REPORT INFORMATION
  Report Type: 
  Country: None (occurrence: None)
  Receive Date: 20120502
  Receipt Date: 20120425
  Transmission Date: 20120825
  Serious: No
  Sender: FDA-Public Use
  Company Number: US-BIOGENIDEC-2012BI014491

PATIENT
  Age: 48 Year
  Sex: Female

DRUGS (1)
  1. TYSABRI [Suspect]
     Indication: MULTIPLE SCLEROSIS
     Route: 042
     Dates: start: 20110422

REACTIONS (10)
  - URINARY TRACT INFECTION [None]
  - GAIT DISTURBANCE [None]
  - FUNGAL INFECTION [None]
  - BLADDER SPASM [None]
  - MUSCLE SPASTICITY [None]
  - NAUSEA [None]
  - BLADDER PAIN [None]
  - BACK PAIN [None]
  - MULTIPLE SCLEROSIS RELAPSE [None]
  - MUSCLE SPASMS [None]
